FAERS Safety Report 5804840-3 (Version None)
Quarter: 2008Q3

REPORT INFORMATION
  Report Type: 
  Country: None (occurrence: None)
  Receive Date: 20080709
  Receipt Date: 20080627
  Transmission Date: 20090109
  Serious: Yes (Other)
  Sender: FDA-Public Use
  Company Number: US-PFIZER INC-2006133210

PATIENT
  Sex: Female
  Weight: 39.5 kg

DRUGS (31)
  1. NEURONTIN [Suspect]
     Indication: NEUROPATHY PERIPHERAL
     Dates: start: 19960101, end: 20071101
  2. LYRICA [Suspect]
     Indication: NEUROPATHY PERIPHERAL
  3. VITAMIN TAB [Concomitant]
  4. IBUPROFEN [Concomitant]
  5. SYNTHROID [Concomitant]
     Route: 048
  6. MEDROL [Concomitant]
     Dosage: TEXT:14MG TO 16 MG PER DAY
     Route: 048
  7. FLORINEF [Concomitant]
     Route: 048
  8. DDAVP [Concomitant]
     Route: 048
  9. PANCREASE [Concomitant]
     Dosage: TEXT:2 TO 3 TABLETS EACH MEAL AND SNACKS
  10. KLOR-CON [Concomitant]
  11. NUTROPIN [Concomitant]
  12. ULTRAM [Concomitant]
     Route: 048
  13. TOPROL-XL [Concomitant]
     Route: 048
  14. NITROGLYCERIN [Concomitant]
  15. NORVASC [Concomitant]
     Route: 048
  16. FOSAMAX [Concomitant]
     Route: 048
  17. PREVACID [Concomitant]
     Route: 048
  18. ALLEGRA-D [Concomitant]
     Dosage: TEXT:2 TABLETS
     Route: 048
  19. NASONEX [Concomitant]
  20. LODINE [Concomitant]
     Dosage: DAILY DOSE:800MG
     Route: 048
  21. ESTRACE [Concomitant]
     Route: 048
  22. PROMETRIUM [Concomitant]
     Route: 048
  23. LEVOCARNITINE [Concomitant]
     Route: 048
  24. CALCIUM [Concomitant]
     Route: 048
  25. PROVIGIL [Concomitant]
     Route: 048
  26. VITAMIN D [Concomitant]
     Dosage: TEXT:50,000 UNITS
  27. METOCLOPRAMIDE [Concomitant]
     Route: 048
  28. DOXYCYCLINE HCL [Concomitant]
     Route: 048
  29. RIFAXIMIN [Concomitant]
     Route: 048
  30. NORITATE [Concomitant]
  31. RETIN-A [Concomitant]
     Indication: PROPHYLAXIS
     Route: 061

REACTIONS (23)
  - ADRENAL DISORDER [None]
  - AGITATION [None]
  - ANGINA PECTORIS [None]
  - DIZZINESS [None]
  - DRUG DOSE OMISSION [None]
  - DRUG INEFFECTIVE [None]
  - FEELING ABNORMAL [None]
  - HEADACHE [None]
  - HYPOPITUITARISM [None]
  - INSOMNIA [None]
  - INTERVERTEBRAL DISC DISORDER [None]
  - MEDICATION ERROR [None]
  - MUSCULAR WEAKNESS [None]
  - MYALGIA [None]
  - NARCOLEPSY [None]
  - NEURALGIA [None]
  - PALPITATIONS [None]
  - PANCREATIC INSUFFICIENCY [None]
  - POLYMYOSITIS [None]
  - SEDATION [None]
  - SOMNOLENCE [None]
  - VISION BLURRED [None]
  - WITHDRAWAL SYNDROME [None]
